FAERS Safety Report 4609507-5 (Version None)
Quarter: 2005Q1

REPORT INFORMATION
  Report Type: 
  Country: None (occurrence: None)
  Receive Date: 20050314
  Receipt Date: 20050314
  Transmission Date: 20050727
  Serious: Yes (Hospitalization)
  Sender: FDA-Public Use
  Company Number: None

PATIENT
  Age: 74 Year
  Sex: Male

DRUGS (8)
  1. NAPROXEN [Suspect]
     Indication: PAIN
     Dosage: 500 MG BID
     Dates: start: 20041203
  2. AUGMENTIN '125' [Concomitant]
  3. AMITRIPTYLINE [Concomitant]
  4. GEMFIBROZIL [Concomitant]
  5. HYDROCHLOROTHIAZIDE [Concomitant]
  6. ATENOLOL [Concomitant]
  7. LACTULOSE [Concomitant]
  8. NIFEDIPINE [Concomitant]

REACTIONS (1)
  - GASTROINTESTINAL HAEMORRHAGE [None]
